FAERS Safety Report 22617773 (Version 1)
Quarter: 2023Q2

REPORT INFORMATION
  Report Type: Spontaneous
  Country: JP (occurrence: JP)
  Receive Date: 20230620
  Receipt Date: 20230620
  Transmission Date: 20230721
  Serious: No
  Sender: FDA-Public Use
  Company Number: JP-PFM-2022-06225

PATIENT
  Age: 28 Year
  Sex: Female
  Weight: 55 kg

DRUGS (7)
  1. PROPRANOLOL [Suspect]
     Active Substance: PROPRANOLOL HYDROCHLORIDE
     Indication: Torsade de pointes
     Dosage: 40 MG/DAY (0.7 MG/KG/DAY)
     Route: 048
  2. PROPRANOLOL [Suspect]
     Active Substance: PROPRANOLOL HYDROCHLORIDE
     Indication: Ventricular fibrillation
     Dosage: 30 MG/DAY (0.55 MG/KG/DAY) A
     Route: 048
  3. PROPRANOLOL [Suspect]
     Active Substance: PROPRANOLOL HYDROCHLORIDE
     Indication: Off label use
  4. VERAPAMIL [Concomitant]
     Active Substance: VERAPAMIL HYDROCHLORIDE
     Indication: Torsade de pointes
     Dosage: 80 MG/DAY (1.5 MG/KG/DAY)
     Route: 048
  5. VERAPAMIL [Concomitant]
     Active Substance: VERAPAMIL HYDROCHLORIDE
     Indication: Ventricular fibrillation
  6. MEXILETINE [Concomitant]
     Active Substance: MEXILETINE
     Indication: Torsade de pointes
     Dosage: 300 MG/DAY (5.5 MG/KG/DAY),
     Route: 065
  7. MEXILETINE [Concomitant]
     Active Substance: MEXILETINE
     Indication: Ventricular fibrillation
     Dosage: 350 MG/DAY (6.4 MG/KG/DAY)
     Route: 065

REACTIONS (3)
  - Drug ineffective for unapproved indication [Unknown]
  - Product use issue [Unknown]
  - Off label use [Unknown]
